FAERS Safety Report 14895470 (Version 1)
Quarter: 2018Q2

REPORT INFORMATION
  Report Type: Spontaneous
  Country: FR (occurrence: FR)
  Receive Date: 20180515
  Receipt Date: 20180515
  Transmission Date: 20180711
  Serious: Yes (Life-Threatening)
  Sender: FDA-Public Use
  Company Number: FR-ELI_LILLY_AND_COMPANY-FR201805004403

PATIENT
  Age: 34 Year
  Sex: Female
  Weight: 63 kg

DRUGS (3)
  1. TERALITHE [Suspect]
     Active Substance: LITHIUM CARBONATE
     Indication: BIPOLAR DISORDER
     Dosage: 2 DF, UNKNOWN
     Route: 048
     Dates: start: 20050809
  2. OLANZAPINE. [Suspect]
     Active Substance: OLANZAPINE
     Indication: BIPOLAR DISORDER
     Dosage: 7.5 MG, UNKNOWN
     Route: 048
     Dates: start: 20050809
  3. SEROPLEX [Suspect]
     Active Substance: ESCITALOPRAM OXALATE
     Indication: ANXIETY DISORDER
     Dosage: 1 DF, UNKNOWN
     Route: 048
     Dates: start: 2016

REACTIONS (2)
  - Thrombosis [Recovering/Resolving]
  - Pulmonary embolism [Recovering/Resolving]

NARRATIVE: CASE EVENT DATE: 201804
